FAERS Safety Report 6668231-8 (Version None)
Quarter: 2010Q2

REPORT INFORMATION
  Report Type: 
  Country: None (occurrence: None)
  Receive Date: 20100406
  Receipt Date: 20100325
  Transmission Date: 20101027
  Serious: Yes (Other)
  Sender: FDA-Public Use
  Company Number: FR-JNJFOC-20100109690

PATIENT
  Sex: Female
  Weight: 55 kg

DRUGS (4)
  1. REMINYL [Suspect]
     Indication: DRUG USE FOR UNKNOWN INDICATION
     Route: 048
  2. CALCIUM AND VITAMIN D [Concomitant]
     Indication: OSTEOPOROSIS
     Route: 048
  3. ARTOTEC [Concomitant]
     Indication: OSTEOARTHRITIS
     Route: 048
  4. STRUCTUM [Concomitant]
     Indication: OSTEOARTHRITIS
     Route: 048

REACTIONS (3)
  - DRUG DISPENSING ERROR [None]
  - INTERCEPTED DRUG ADMINISTRATION ERROR [None]
  - NO ADVERSE EVENT [None]
